FAERS Safety Report 20146829 (Version 1)
Quarter: 2021Q4

REPORT INFORMATION
  Report Type: Spontaneous
  Country: ES (occurrence: ES)
  Receive Date: 20211203
  Receipt Date: 20211203
  Transmission Date: 20220303
  Serious: Yes (Hospitalization)
  Sender: FDA-Public Use
  Company Number: ES-GILEAD-2021-0558483

PATIENT
  Age: 21 Year
  Sex: Male

DRUGS (2)
  1. GENVOYA [Interacting]
     Active Substance: COBICISTAT\ELVITEGRAVIR\EMTRICITABINE\TENOFOVIR ALAFENAMIDE FUMARATE
     Indication: HIV infection
     Dosage: 150/150/200/10MG, QD
     Route: 065
  2. CAFFEINE\ERGOTAMINE TARTRATE\METAMIZOLE SODIUM [Interacting]
     Active Substance: CAFFEINE\ERGOTAMINE TARTRATE\METAMIZOLE SODIUM
     Indication: Migraine
     Dosage: 500 MG
     Route: 065

REACTIONS (2)
  - Peripheral ischaemia [Recovered/Resolved]
  - Drug interaction [Recovered/Resolved]
